FAERS Safety Report 4683923-8 (Version None)
Quarter: 2005Q2

REPORT INFORMATION
  Report Type: 
  Country: None (occurrence: None)
  Receive Date: 20050607
  Receipt Date: 20050531
  Transmission Date: 20051028
  Serious: Yes (Disabling)
  Sender: FDA-Public Use
  Company Number: GB-ROCHE-406410

PATIENT
  Age: 59 Year
  Sex: Male
  Weight: 98.4 kg

DRUGS (2)
  1. XENICAL [Suspect]
     Indication: OBESITY
     Route: 048
     Dates: start: 20050415, end: 20050430
  2. PREDSOL [Concomitant]
     Indication: RECTAL HAEMORRHAGE
     Route: 054

REACTIONS (6)
  - APPLICATION SITE REACTION [None]
  - COLITIS [None]
  - DIARRHOEA [None]
  - RECTAL DISCHARGE [None]
  - RECTAL HAEMORRHAGE [None]
  - SKIN REACTION [None]
